FAERS Safety Report 4993927-3 (Version None)
Quarter: 2006Q2

REPORT INFORMATION
  Report Type: 
  Country: None (occurrence: None)
  Receive Date: 20060505
  Receipt Date: 20060424
  Transmission Date: 20061013
  Serious: Yes (Other)
  Sender: FDA-Public Use
  Company Number: PHBS2006CH06397

PATIENT
  Age: 67 Year
  Sex: Female

DRUGS (4)
  1. ZOMETA [Suspect]
     Indication: BREAST CANCER FEMALE
     Dosage: UNK, QMO
     Dates: start: 20031010, end: 20041215
  2. MORPHINE [Concomitant]
  3. NSAID'S [Concomitant]
  4. HORMONES [Concomitant]

REACTIONS (7)
  - DENTAL TREATMENT [None]
  - EAR PAIN [None]
  - EYE PAIN [None]
  - NEURALGIA [None]
  - OSTEONECROSIS [None]
  - PERIODONTAL DISEASE [None]
  - TOOTH EXTRACTION [None]
